FAERS Safety Report 4674630-6 (Version None)
Quarter: 2005Q2

REPORT INFORMATION
  Report Type: 
  Country: None (occurrence: None)
  Receive Date: 20050524
  Receipt Date: 20050512
  Transmission Date: 20051028
  Serious: Yes (Hospitalization)
  Sender: FDA-Public Use
  Company Number: CART-10391

PATIENT
  Age: 31 Year
  Sex: Male
  Weight: 99.7913 kg

DRUGS (1)
  1. CARTICEL [Suspect]
     Indication: CHONDROPATHY
     Dosage: 1 NA ONCE IS
     Route: 045
     Dates: start: 20010522, end: 20010522

REACTIONS (9)
  - ARTHROPATHY [None]
  - CHONDROMALACIA [None]
  - CHONDROPATHY [None]
  - FAILURE OF IMPLANT [None]
  - MENISCUS LESION [None]
  - PATELLOFEMORAL PAIN SYNDROME [None]
  - POST PROCEDURAL PAIN [None]
  - SCAR [None]
  - SYNOVITIS [None]
